FAERS Safety Report 4740511-2 (Version None)
Quarter: 2005Q3

REPORT INFORMATION
  Report Type: 
  Country: None (occurrence: None)
  Receive Date: 20050810
  Receipt Date: 20050307
  Transmission Date: 20060218
  Serious: Yes (Death, Other)
  Sender: FDA-Public Use
  Company Number: PHNU2005DE01246

PATIENT
  Age: 71 Year
  Sex: Female

DRUGS (6)
  1. ZOMETA [Suspect]
     Indication: BREAST CANCER METASTATIC
     Dosage: UNK, UNK
  2. TAMOXIFEN [Concomitant]
     Indication: BREAST CANCER
     Dates: start: 19960101
  3. ORIMETEN [Concomitant]
     Indication: BREAST CANCER
     Dosage: UNK, UNK
     Dates: start: 19960101
  4. TOREMIFENE [Concomitant]
     Indication: BREAST CANCER
     Dosage: UNK, UNK
     Dates: start: 19960101
  5. FEMARA [Concomitant]
     Indication: BREAST CANCER
     Dates: start: 19970901
  6. AREDIA [Concomitant]
     Indication: BREAST CANCER
     Dates: start: 19980701

REACTIONS (5)
  - ACTINOMYCOSIS [None]
  - CELLULITIS [None]
  - OSTEOMYELITIS [None]
  - OSTEONECROSIS [None]
  - SEPSIS [None]
